FAERS Safety Report 16579118 (Version 1)
Quarter: 2019Q3

REPORT INFORMATION
  Report Type: Report from Study
  Country: US (occurrence: US)
  Receive Date: 20190716
  Receipt Date: 20190716
  Transmission Date: 20191004
  Serious: Yes (Other)
  Sender: FDA-Public Use
  Company Number: US-CURIUM-200300222

PATIENT
  Age: 74 Year
  Sex: Male

DRUGS (4)
  1. SODIUM IODIDE I 131 [Suspect]
     Active Substance: SODIUM IODIDE I-131
     Indication: PAPILLARY THYROID CANCER
     Dosage: 3700 MBQ
     Route: 065
     Dates: start: 199310, end: 199310
  2. SODIUM IODIDE I 131 [Suspect]
     Active Substance: SODIUM IODIDE I-131
     Indication: PAPILLARY THYROID CANCER
     Dosage: 7400 MBQ
     Route: 065
     Dates: start: 199906, end: 199906
  3. SODIUM IODIDE I 131 [Suspect]
     Active Substance: SODIUM IODIDE I-131
     Indication: PAPILLARY THYROID CANCER
     Dosage: 7400 MBQ
     Route: 065
     Dates: start: 199405, end: 199405
  4. SODIUM IODIDE I 131 [Suspect]
     Active Substance: SODIUM IODIDE I-131
     Indication: PAPILLARY THYROID CANCER
     Dosage: 5550 MBQ
     Route: 065
     Dates: start: 199706, end: 199706

REACTIONS (2)
  - Lacrimation increased [Recovered/Resolved]
  - Dacryostenosis acquired [Recovered/Resolved]
